FAERS Safety Report 25103911 (Version 1)
Quarter: 2025Q1

REPORT INFORMATION
  Report Type: Spontaneous
  Country: US (occurrence: US)
  Receive Date: 20250321
  Receipt Date: 20250321
  Transmission Date: 20250409
  Serious: Yes (Life-Threatening, Hospitalization, Other)
  Sender: AMGEN
  Company Number: US-AMGEN-USASP2025053858

PATIENT
  Age: 60 Year
  Sex: Male

DRUGS (2)
  1. PREDNISONE [Suspect]
     Active Substance: PREDNISONE
     Indication: Bronchitis
     Route: 065
  2. DOXYCYCLINE [Concomitant]
     Active Substance: DOXYCYCLINE
     Indication: Bronchitis
     Route: 065

REACTIONS (6)
  - Ventricle rupture [Unknown]
  - Silent myocardial infarction [Unknown]
  - Coronary artery stenosis [Unknown]
  - Cardiac aneurysm [Recovered/Resolved]
  - Pericardial effusion [Unknown]
  - Off label use [Unknown]
